FAERS Safety Report 9796306 (Version 2)
Quarter: 2014Q2

REPORT INFORMATION
  Report Type: Report from Study
  Country: US (occurrence: US)
  Receive Date: 20140103
  Receipt Date: 20140612
  Transmission Date: 20141212
  Serious: Yes (Hospitalization)
  Sender: FDA-Public Use
  Company Number: US-ROCHE-1324882

PATIENT
  Age: 72 Year
  Sex: Male
  Weight: 74.8 kg

DRUGS (11)
  1. VISMODEGIB [Suspect]
     Indication: BASAL CELL CARCINOMA
     Route: 048
     Dates: start: 20130314
  2. MAXITROL [Concomitant]
     Indication: PROPHYLAXIS
     Route: 061
  3. SPIRIVA HANDIHALER [Concomitant]
     Indication: CHRONIC OBSTRUCTIVE PULMONARY DISEASE
     Route: 055
  4. SYMBICORT [Concomitant]
     Indication: CHRONIC OBSTRUCTIVE PULMONARY DISEASE
     Dosage: 160-4.5 MICROGRAMS
     Route: 055
  5. VENTOLIN HFA [Concomitant]
     Indication: CHRONIC OBSTRUCTIVE PULMONARY DISEASE
     Dosage: 1-2 PUFFS, AS NEEDED
     Route: 055
  6. BUSPAR [Concomitant]
     Indication: ANXIETY
     Route: 048
  7. COZAAR [Concomitant]
     Indication: HYPERTENSION
     Route: 048
  8. CARTIA XT [Concomitant]
     Indication: HYPERTENSION
     Route: 048
  9. CARTIA XT [Concomitant]
     Indication: TACHYCARDIA
  10. FLEXERIL (UNITED STATES) [Concomitant]
  11. VICODIN [Concomitant]
     Indication: PAIN
     Route: 048

REACTIONS (1)
  - Visual acuity reduced [Recovered/Resolved]
